FAERS Safety Report 6828984-2 (Version None)
Quarter: 2010Q3

REPORT INFORMATION
  Report Type: 
  Country: None (occurrence: None)
  Receive Date: 20100709
  Receipt Date: 20070226
  Transmission Date: 20110219
  Serious: No
  Sender: FDA-Public Use
  Company Number: US-PFIZER INC-2007015154

PATIENT
  Sex: Male

DRUGS (1)
  1. CHANTIX [Suspect]

REACTIONS (8)
  - ABSTAINS FROM ALCOHOL [None]
  - BINGE EATING [None]
  - CONSTIPATION [None]
  - DIARRHOEA [None]
  - DYSPHORIA [None]
  - FLATULENCE [None]
  - HEADACHE [None]
  - LETHARGY [None]
